FAERS Safety Report 25609696 (Version 1)
Quarter: 2025Q3

REPORT INFORMATION
  Report Type: Report from Study
  Country: US (occurrence: US)
  Receive Date: 20250728
  Receipt Date: 20250728
  Transmission Date: 20251020
  Serious: Yes (Other)
  Sender: JAZZ
  Company Number: US-JAZZ PHARMACEUTICALS-2025-US-016342

PATIENT
  Sex: Female
  Weight: 56.7 kg

DRUGS (17)
  1. EPIDIOLEX [Suspect]
     Active Substance: CANNABIDIOL
     Indication: Lennox-Gastaut syndrome
     Dosage: 6.4 MILLILITER, BID, FEEDING TUBE
  2. EPIDIOLEX [Suspect]
     Active Substance: CANNABIDIOL
     Dosage: 6.4 MILLILITER, BID (G TUBE)
  3. VALPROIC ACID [Concomitant]
     Active Substance: VALPROIC ACID
  4. VALPROIC ACID [Concomitant]
     Active Substance: VALPROIC ACID
  5. VITAMIN D3 [Concomitant]
     Active Substance: CHOLECALCIFEROL
  6. SOY ISOFLAVONES EXTRACT [Concomitant]
  7. LEVOCARNITINE [Concomitant]
     Active Substance: LEVOCARNITINE
  8. VITAMIN B12 [Concomitant]
     Active Substance: CYANOCOBALAMIN
  9. BANZEL [Concomitant]
     Active Substance: RUFINAMIDE
  10. BANZEL [Concomitant]
     Active Substance: RUFINAMIDE
  11. MUCINEX [Concomitant]
     Active Substance: GUAIFENESIN
  12. PREVACID [Concomitant]
     Active Substance: LANSOPRAZOLE
  13. PREVACID [Concomitant]
     Active Substance: LANSOPRAZOLE
  14. VIMPAT [Concomitant]
     Active Substance: LACOSAMIDE
  15. LEVOTHYROXINE [Concomitant]
     Active Substance: LEVOTHYROXINE
  16. XCOPRI [Concomitant]
     Active Substance: CENOBAMATE
  17. XCOPRI [Concomitant]
     Active Substance: CENOBAMATE

REACTIONS (2)
  - Seizure [Unknown]
  - Therapeutic response unexpected [Unknown]
